FAERS Safety Report 6979445-1 (Version None)
Quarter: 2010Q3

REPORT INFORMATION
  Report Type: 
  Country: None (occurrence: None)
  Receive Date: 20100913
  Receipt Date: 20100907
  Transmission Date: 20110219
  Serious: Yes (Other)
  Sender: FDA-Public Use
  Company Number: DE-AMGEN-KDL411197

PATIENT
  Sex: Female

DRUGS (4)
  1. NEULASTA [Suspect]
     Indication: CHEMOTHERAPY
     Route: 058
     Dates: start: 20100324, end: 20100324
  2. NAVOBAN [Concomitant]
     Dates: start: 20100324, end: 20100324
  3. DEXAMETHASONE [Concomitant]
     Dates: start: 20100324, end: 20100324
  4. EMEND [Concomitant]
     Dates: start: 20100324, end: 20100324

REACTIONS (3)
  - DRUG INEFFECTIVE [None]
  - NEUTROPENIA [None]
  - WHITE BLOOD CELL COUNT DECREASED [None]
